FAERS Safety Report 8820714 (Version 2)
Quarter: 2012Q4

REPORT INFORMATION
  Report Type: 
  Country: FR (occurrence: FR)
  Receive Date: 20121002
  Receipt Date: 20121015
  Transmission Date: 20130627
  Serious: Yes (Hospitalization)
  Sender: FDA-Public Use
  Company Number: FR-PFIZER INC-2012238499

PATIENT
  Age: 63 Year
  Sex: Female

DRUGS (1)
  1. XANAX [Suspect]
     Dosage: UNK
     Route: 048
     Dates: start: 20090708, end: 20090708

REACTIONS (2)
  - Intentional drug misuse [Recovered/Resolved]
  - Somnolence [Recovered/Resolved]
